FAERS Safety Report 9166634 (Version 1)
Quarter: 2013Q1

REPORT INFORMATION
  Report Type: Spontaneous
  Country: US (occurrence: US)
  Receive Date: 20130315
  Receipt Date: 20130315
  Transmission Date: 20140127
  Serious: Yes (Death, Other)
  Sender: FDA-Public Use
  Company Number: US-BAXTER-2013BAX009170

PATIENT
  Age: 45 Year
  Sex: Male
  Weight: 58.11 kg

DRUGS (2)
  1. STERILE WATER FOR IRRIGATION [Suspect]
     Indication: HAEMATURIA
  2. NORMAL SALINE [Concomitant]
     Indication: PRODUCT USED FOR UNKNOWN INDICATION

REACTIONS (4)
  - Intravascular haemolysis [Fatal]
  - Hyponatraemia [Fatal]
  - Volume blood increased [Unknown]
  - Convulsion [Unknown]
